FAERS Safety Report 16246124 (Version 3)
Quarter: 2020Q2

REPORT INFORMATION
  Report Type: Report from Study
  Country: US (occurrence: US)
  Receive Date: 20190426
  Receipt Date: 20200609
  Transmission Date: 20200713
  Serious: Yes (Hospitalization, Other)
  Sender: FDA-Public Use
  Company Number: US-SHIRE-US201912858

PATIENT
  Sex: Female

DRUGS (1)
  1. HUMAN IMMUNOGLOBULIN; HYALURONIDASE [Suspect]
     Active Substance: HUMAN IMMUNOGLOBULIN G\HYALURONIDASE RECOMBINANT HUMAN
     Indication: IMMUNODEFICIENCY COMMON VARIABLE
     Dosage: 30 GRAM, EVERY 3 WK
     Route: 065

REACTIONS (9)
  - Multimorbidity [Unknown]
  - Escherichia urinary tract infection [Unknown]
  - Multiple sclerosis [Unknown]
  - Fall [Unknown]
  - Fracture [Unknown]
  - Malaise [Unknown]
  - Influenza like illness [Unknown]
  - Hospitalisation [Unknown]
  - Pain [Unknown]
